FAERS Safety Report 9166438 (Version 3)
Quarter: 2013Q4

REPORT INFORMATION
  Report Type: Spontaneous
  Country: US (occurrence: US)
  Receive Date: 20130315
  Receipt Date: 20131021
  Transmission Date: 20140711
  Serious: Yes (Death)
  Sender: FDA-Public Use
  Company Number: US-BRISTOL-MYERS SQUIBB COMPANY-17458498

PATIENT
  Age: 52 Year
  Sex: Male
  Weight: 152.38 kg

DRUGS (18)
  1. YERVOY [Suspect]
     Indication: METASTATIC MALIGNANT MELANOMA
     Dates: start: 20120515
  2. CLONAZEPAM [Concomitant]
     Route: 048
  3. GLIPIZIDE [Concomitant]
     Route: 048
  4. ENALAPRIL MALEATE [Concomitant]
     Route: 048
  5. FUROSEMIDE [Concomitant]
     Route: 048
  6. LEVOTHYROXINE [Concomitant]
     Route: 048
  7. MECLIZINE [Concomitant]
     Route: 048
  8. CITALOPRAM [Concomitant]
     Route: 048
  9. METFORMIN [Concomitant]
     Route: 048
  10. DIGOXIN [Concomitant]
     Route: 048
  11. PRAVASTATIN MR [Concomitant]
     Route: 048
  12. METOPROLOL TARTRATE [Concomitant]
     Route: 048
  13. COUMADIN [Concomitant]
     Route: 048
  14. VICODIN [Concomitant]
     Route: 048
  15. PHENERGAN [Concomitant]
     Route: 048
  16. DURAGESIC [Concomitant]
     Route: 061
  17. KLOR-CON [Concomitant]
     Route: 048
  18. LEVETIRACETAM [Concomitant]
     Dosage: TABS
     Route: 048

REACTIONS (2)
  - Malignant neoplasm progression [Fatal]
  - Hepatic failure [Fatal]
